FAERS Safety Report 8055119-3 (Version None)
Quarter: 2012Q1

REPORT INFORMATION
  Report Type: 
  Country: None (occurrence: None)
  Receive Date: 20120119
  Receipt Date: 20120112
  Transmission Date: 20120608
  Serious: Yes (Hospitalization)
  Sender: FDA-Public Use
  Company Number: BE-BRISTOL-MYERS SQUIBB COMPANY-16347098

PATIENT
  Age: 41 Year
  Sex: Female
  Weight: 59 kg

DRUGS (8)
  1. CP-751,871 [Suspect]
     Indication: BREAST CANCER
     Dates: start: 20070521, end: 20071015
  2. EPIRUBICIN HYDROCHLORIDE [Suspect]
     Indication: BREAST CANCER
     Dates: start: 20080101
  3. FLUOROURACIL [Suspect]
     Indication: BREAST CANCER
     Dates: start: 20080101
  4. CYCLOPHOSPHAMIDE [Suspect]
     Indication: BREAST CANCER
     Dates: start: 20080101
  5. EXEMESTANE [Suspect]
     Indication: BREAST CANCER
     Route: 048
     Dates: start: 20070521, end: 20071108
  6. EFFEXOR [Concomitant]
     Indication: PSYCHOTHERAPY
     Dates: start: 20080101
  7. DOXORUBICIN HCL [Suspect]
     Indication: BREAST CANCER
     Dosage: THIRD CYCLE 28-MAR-2008.
     Dates: start: 20080215
  8. LITICAN [Concomitant]
     Indication: NAUSEA
     Dates: start: 20080101

REACTIONS (3)
  - WHITE BLOOD CELL COUNT DECREASED [None]
  - FEBRILE NEUTROPENIA [None]
  - MUCOSAL INFLAMMATION [None]
